FAERS Safety Report 13156591 (Version 1)
Quarter: 2017Q1

REPORT INFORMATION
  Report Type: Spontaneous
  Country: US (occurrence: US)
  Receive Date: 20170126
  Receipt Date: 20170126
  Transmission Date: 20170428
  Serious: No
  Sender: FDA-Public Use
  Company Number: US-PFIZER INC-2017034269

PATIENT
  Age: 73 Year
  Sex: Female
  Weight: 63.5 kg

DRUGS (2)
  1. TOVIAZ [Suspect]
     Active Substance: FESOTERODINE FUMARATE
     Dosage: 4 MG ONE TABLET, DAILY
     Route: 048
     Dates: start: 2016, end: 2016
  2. TOVIAZ [Suspect]
     Active Substance: FESOTERODINE FUMARATE
     Indication: HYPERTONIC BLADDER
     Dosage: ONE 8MG DOSE
     Dates: start: 2016, end: 2016

REACTIONS (3)
  - Bladder spasm [Recovered/Resolved]
  - Dysuria [Recovered/Resolved]
  - Micturition urgency [Recovered/Resolved]

NARRATIVE: CASE EVENT DATE: 2016
